FAERS Safety Report 9541512 (Version 2)
Quarter: 2014Q1

REPORT INFORMATION
  Report Type: Spontaneous
  Country: US (occurrence: None)
  Receive Date: 20130524
  Receipt Date: 20130724
  Transmission Date: 20141002
  Serious: No
  Sender: FDA-Public Use
  Company Number: PHEH2013US002257

PATIENT
  Age: 50 Year
  Sex: Female

DRUGS (5)
  1. GILENYA [Suspect]
     Indication: RELAPSING-REMITTING MULTIPLE SCLEROSIS
     Route: 048
     Dates: start: 201010, end: 201210
  2. TOPAMAX (TOPIRAMATE) [Concomitant]
  3. NEURONTIN (GABAPENTIN) [Concomitant]
  4. AMPYRA (FAMPRIDINE) [Concomitant]
  5. SAVELLA (MILNACIPRAN HYDROCHLORIDE) [Concomitant]

REACTIONS (4)
  - Decreased immune responsiveness [None]
  - Infection [None]
  - Sinusitis [None]
  - Upper respiratory tract infection [None]
